FAERS Safety Report 5381603-7 (Version None)
Quarter: 2007Q2

REPORT INFORMATION
  Report Type: 
  Country: None (occurrence: None)
  Receive Date: 20070629
  Receipt Date: 20070522
  Transmission Date: 20071010
  Serious: Yes (Other)
  Sender: FDA-Public Use
  Company Number: A03200703249

PATIENT
  Age: 55 Year
  Sex: Female

DRUGS (1)
  1. AMBIEN [Suspect]
     Indication: SOMNOLENCE
     Dosage: 12.5 MG HS - ORAL
     Route: 048
     Dates: start: 20070101, end: 20070101

REACTIONS (2)
  - HALLUCINATION [None]
  - SLEEP WALKING [None]
